FAERS Safety Report 9695979 (Version 1)
Quarter: 2013Q4

REPORT INFORMATION
  Report Type: Report from Study
  Country: DE (occurrence: DE)
  Receive Date: 20131119
  Receipt Date: 20131119
  Transmission Date: 20140711
  Serious: Yes (Hospitalization)
  Sender: FDA-Public Use
  Company Number: DE-BRISTOL-MYERS SQUIBB COMPANY-19804426

PATIENT
  Age: 48 Year
  Sex: Female

DRUGS (3)
  1. CARBOPLATIN [Suspect]
     Indication: OVARIAN CANCER
     Dosage: DRUG TAKEN PRIOR TO ONET OF AE:L8/APR/20L2
     Route: 042
     Dates: start: 20120104
  2. PACLITAXEL [Suspect]
     Indication: OVARIAN CANCER
     Dosage: DRUG TAKEN PRIOR TO ONET OF AE:18/APR/2012:266MG
     Route: 042
     Dates: start: 20120104
  3. BEVACIZUMAB [Suspect]
     Indication: OVARIAN CANCER
     Dosage: LAST DOSE OF BEVACIZUMAB ON 04OCT2012: PRIOR TO SAE OF ABDOMINAL PAIN(ONSET DATE: 15OCT2012,GR3).
     Route: 042
     Dates: start: 20120104

REACTIONS (2)
  - Pyrexia [Not Recovered/Not Resolved]
  - Abdominal pain [Recovered/Resolved]
